FAERS Safety Report 17021223 (Version 1)
Quarter: 2019Q4

REPORT INFORMATION
  Report Type: Spontaneous
  Country: GB (occurrence: GB)
  Receive Date: 20191112
  Receipt Date: 20191112
  Transmission Date: 20200122
  Serious: Yes (Other)
  Sender: FDA-Public Use
  Company Number: GB-PFIZER INC-2019483897

PATIENT
  Age: 36 Year
  Sex: Female
  Weight: 82.55 kg

DRUGS (1)
  1. TOLTERODINE TARTRATE. [Suspect]
     Active Substance: TOLTERODINE TARTRATE
     Indication: URGE INCONTINENCE
     Dosage: 1 MG, UNK
     Route: 048
     Dates: start: 20190923, end: 20191016

REACTIONS (3)
  - Fatigue [Recovering/Resolving]
  - Head discomfort [Recovering/Resolving]
  - Vertigo [Recovering/Resolving]

NARRATIVE: CASE EVENT DATE: 20191002
